FAERS Safety Report 23471030 (Version 2)
Quarter: 2024Q1

REPORT INFORMATION
  Report Type: Spontaneous
  Country: ES (occurrence: ES)
  Receive Date: 20240202
  Receipt Date: 20240208
  Transmission Date: 20240410
  Serious: Yes (Hospitalization, Other)
  Sender: FDA-Public Use
  Company Number: None

PATIENT
  Age: 68 Year
  Sex: Female

DRUGS (9)
  1. LENALIDOMIDE [Suspect]
     Active Substance: LENALIDOMIDE
     Indication: Plasma cell myeloma refractory
     Dosage: 10 MILLIGRAM, QD
  2. LENALIDOMIDE [Suspect]
     Active Substance: LENALIDOMIDE
     Indication: Plasma cell myeloma
  3. BORTEZOMIB [Suspect]
     Active Substance: BORTEZOMIB
     Indication: Plasma cell myeloma
     Dosage: SECOND CR WAS ACHIEVED WITH BORTEZOMIB
  4. BORTEZOMIB [Suspect]
     Active Substance: BORTEZOMIB
     Indication: Plasma cell myeloma refractory
  5. THALIDOMIDE [Suspect]
     Active Substance: THALIDOMIDE
     Indication: Plasma cell myeloma refractory
     Dosage: SECOND CR WAS ACHIEVED WITH BORTEZOMIB
  6. THALIDOMIDE [Suspect]
     Active Substance: THALIDOMIDE
     Indication: Plasma cell myeloma
  7. DEXAMETHASONE [Suspect]
     Active Substance: DEXAMETHASONE
     Indication: Plasma cell myeloma refractory
     Dosage: SECOND CR WAS ACHIEVED WITH BORTEZOMIB
  8. VINCRISTINE [Concomitant]
     Active Substance: VINCRISTINE
     Indication: Plasma cell myeloma
     Dosage: UNK
  9. DOXORUBICIN [Concomitant]
     Active Substance: DOXORUBICIN
     Indication: Plasma cell myeloma
     Dosage: UNK

REACTIONS (3)
  - B-cell type acute leukaemia [Recovered/Resolved]
  - Cardiogenic shock [Unknown]
  - Gastrointestinal toxicity [Unknown]
